FAERS Safety Report 6025195-8 (Version None)
Quarter: 2008Q4

REPORT INFORMATION
  Report Type: 
  Country: None (occurrence: None)
  Receive Date: 20081224
  Receipt Date: 20081219
  Transmission Date: 20090506
  Serious: Yes (Hospitalization)
  Sender: FDA-Public Use
  Company Number: 2008SP025769

PATIENT
  Age: 45 Year
  Sex: Female

DRUGS (4)
  1. BETAMETHASONE [Suspect]
     Indication: LUNG INFECTION
     Dosage: PO
     Route: 048
     Dates: start: 20081013, end: 20081015
  2. ZYPREXA [Suspect]
     Indication: SCHIZOPHRENIA
     Dosage: 20 MG, QD; PO
     Route: 048
     Dates: start: 20080715, end: 20081017
  3. RULID (ROXITHROMYCIN) [Concomitant]
     Indication: LUNG INFECTION
     Dosage: PO
     Route: 048
     Dates: start: 20081013, end: 20081015
  4. TAHOR [Concomitant]

REACTIONS (4)
  - DIABETIC HYPEROSMOLAR COMA [None]
  - DIABETIC KETOACIDOSIS [None]
  - HYPOVOLAEMIC SHOCK [None]
  - RENAL FAILURE ACUTE [None]
